FAERS Safety Report 15050840 (Version 1)
Quarter: 2018Q2

REPORT INFORMATION
  Report Type: Spontaneous
  Country: US (occurrence: US)
  Receive Date: 20180622
  Receipt Date: 20180622
  Transmission Date: 20180711
  Serious: No
  Sender: FDA-Public Use
  Company Number: US-ASTELLAS-2018US004434

PATIENT
  Sex: Female

DRUGS (3)
  1. LOSARTAN. [Concomitant]
     Active Substance: LOSARTAN
     Indication: BLOOD PRESSURE FLUCTUATION
     Dosage: IN THE MORNING
     Route: 065
  2. ATENOLOL. [Concomitant]
     Active Substance: ATENOLOL
     Indication: BLOOD PRESSURE FLUCTUATION
     Dosage: IN THE MORNING AND AGAIN AT THE NIGHT
     Route: 065
  3. VESICARE [Suspect]
     Active Substance: SOLIFENACIN SUCCINATE
     Indication: PRODUCT USED FOR UNKNOWN INDICATION
     Dosage: 5 MG, TWICE DAILY (TAKING 5 MILLIGRAM IN THE MORNING AND 5 MILLIGRAM IN THE EVENING)
     Route: 048

REACTIONS (1)
  - Inappropriate schedule of drug administration [Unknown]
